FAERS Safety Report 5674347-5 (Version None)
Quarter: 2008Q1

REPORT INFORMATION
  Report Type: 
  Country: None (occurrence: None)
  Receive Date: 20080320
  Receipt Date: 20080307
  Transmission Date: 20080703
  Serious: Yes (Hospitalization)
  Sender: FDA-Public Use
  Company Number: US-AMGEN-QUU268704

PATIENT
  Sex: Female

DRUGS (1)
  1. ENBREL [Suspect]
     Indication: RHEUMATOID ARTHRITIS
     Route: 058
     Dates: start: 20000801, end: 20040101

REACTIONS (11)
  - CHRONIC SINUSITIS [None]
  - GALLBLADDER DISORDER [None]
  - GRIP STRENGTH DECREASED [None]
  - HAND DEFORMITY [None]
  - INJECTION SITE REACTION [None]
  - JOINT RANGE OF MOTION DECREASED [None]
  - MUSCULOSKELETAL PAIN [None]
  - NERVE COMPRESSION [None]
  - PAIN IN EXTREMITY [None]
  - PARAESTHESIA [None]
  - URINARY TRACT INFECTION [None]
